FAERS Safety Report 13312285 (Version 1)
Quarter: 2017Q1

REPORT INFORMATION
  Report Type: Spontaneous
  Country: US (occurrence: US)
  Receive Date: 20170309
  Receipt Date: 20170309
  Transmission Date: 20170428
  Serious: No
  Sender: FDA-Public Use
  Company Number: None

PATIENT
  Age: 72 Year
  Sex: Male
  Weight: 76.73 kg

DRUGS (8)
  1. TERBINAFINE TABLETS, USP 250 MG CIPLA [Suspect]
     Active Substance: TERBINAFINE
     Indication: RASH
     Dates: start: 20170117, end: 20170205
  2. ECTORIN [Concomitant]
  3. ASTROVASTIN [Concomitant]
  4. ZINC. [Concomitant]
     Active Substance: ZINC
  5. SPIRIVA [Concomitant]
     Active Substance: TIOTROPIUM BROMIDE MONOHYDRATE
  6. PRESERVISION [Concomitant]
     Active Substance: MINERALS\VITAMINS
  7. METROPOLOL [Concomitant]
     Active Substance: METOPROLOL
  8. PROAIR INHALER [Concomitant]

REACTIONS (2)
  - Weight decreased [None]
  - Ageusia [None]

NARRATIVE: CASE EVENT DATE: 20170117
